FAERS Safety Report 23117026 (Version 2)
Quarter: 2023Q4

REPORT INFORMATION
  Report Type: Spontaneous
  Country: CN (occurrence: None)
  Receive Date: 20231027
  Receipt Date: 20231117
  Transmission Date: 20240110
  Serious: Yes (Other)
  Sender: FDA-Public Use
  Company Number: 2023A242123

PATIENT

DRUGS (1)
  1. TAGRISSO [Suspect]
     Active Substance: OSIMERTINIB
     Indication: Lung neoplasm malignant
     Dosage: 80.0MG UNKNOWN
     Route: 048

REACTIONS (4)
  - Metastases to liver [Unknown]
  - Hepatic function abnormal [Recovering/Resolving]
  - Transaminases increased [Unknown]
  - Drug-induced liver injury [Unknown]
